FAERS Safety Report 17925908 (Version 1)
Quarter: 2020Q2

REPORT INFORMATION
  Report Type: Spontaneous
  Country: IT (occurrence: IT)
  Receive Date: 20200622
  Receipt Date: 20200622
  Transmission Date: 20200714
  Serious: Yes (Death)
  Sender: FDA-Public Use
  Company Number: NVSC2020IT173575

PATIENT
  Age: 50 Year
  Sex: Male

DRUGS (8)
  1. INTERFERON [Suspect]
     Active Substance: INTERFERON
     Indication: CORONAVIRUS INFECTION
  2. MOXIFLOXACIN. [Suspect]
     Active Substance: MOXIFLOXACIN
     Indication: DYSPNOEA
  3. MOXIFLOXACIN. [Suspect]
     Active Substance: MOXIFLOXACIN
     Indication: COUGH
  4. MOXIFLOXACIN. [Suspect]
     Active Substance: MOXIFLOXACIN
     Indication: CORONAVIRUS INFECTION
  5. MOXIFLOXACIN. [Suspect]
     Active Substance: MOXIFLOXACIN
     Indication: FATIGUE
     Dosage: UNK
     Route: 065
  6. INTERFERON [Suspect]
     Active Substance: INTERFERON
     Indication: DYSPNOEA
  7. INTERFERON [Suspect]
     Active Substance: INTERFERON
     Indication: FATIGUE
  8. INTERFERON [Suspect]
     Active Substance: INTERFERON
     Indication: COUGH
     Dosage: UNK
     Route: 065

REACTIONS (1)
  - Immune system disorder [Fatal]
